FAERS Safety Report 4365585-2 (Version None)
Quarter: 2004Q2

REPORT INFORMATION
  Report Type: 
  Country: None (occurrence: None)
  Receive Date: 20040526
  Receipt Date: 20040514
  Transmission Date: 20050107
  Serious: Yes (Hospitalization)
  Sender: FDA-Public Use
  Company Number: IT-BRISTOL-MYERS SQUIBB COMPANY-12589941

PATIENT
  Age: 78 Year
  Sex: Female

DRUGS (10)
  1. CETUXIMAB [Suspect]
     Indication: COLORECTAL CANCER
     Dosage: LOADING DOSE.  TX DELAYED DUE TO EVENT.
     Route: 042
     Dates: start: 20040507
  2. IRINOTECAN [Suspect]
     Indication: COLORECTAL CANCER
     Dosage: INITIAL DOSE. TX DELAYED DUE TO EVENT.
     Route: 042
     Dates: start: 20040507
  3. COUMADIN [Suspect]
  4. AMIODARONE HCL [Suspect]
  5. TRAMADOL HCL [Suspect]
  6. LANSOX [Concomitant]
  7. EUTHYROX [Concomitant]
  8. LASIX [Concomitant]
  9. LANOXIN [Concomitant]
  10. KANRENOL [Concomitant]

REACTIONS (1)
  - HYPERBILIRUBINAEMIA [None]
